FAERS Safety Report 4591780-3 (Version None)
Quarter: 2005Q1

REPORT INFORMATION
  Report Type: 
  Country: None (occurrence: None)
  Receive Date: 20050222
  Receipt Date: 20050207
  Transmission Date: 20050727
  Serious: Yes (Life-Threatening, Other)
  Sender: FDA-Public Use
  Company Number: 2005026307

PATIENT
  Sex: Female

DRUGS (1)
  1. UNASYN [Suspect]
     Indication: APPENDICITIS
     Dosage: INTRAVENOUS
     Route: 042
     Dates: start: 20050107, end: 20050107

REACTIONS (4)
  - ANAPHYLACTIC SHOCK [None]
  - MEDICATION ERROR [None]
  - METABOLIC ACIDOSIS [None]
  - WEIGHT DECREASED [None]
